FAERS Safety Report 8960229 (Version 1)
Quarter: 2012Q4

REPORT INFORMATION
  Report Type: Report from Study
  Country: FR (occurrence: FR)
  Receive Date: 20121211
  Receipt Date: 20121211
  Transmission Date: 20130627
  Serious: Yes (Death, Hospitalization)
  Sender: FDA-Public Use
  Company Number: FR-BAXTER-2012BAX026056

PATIENT
  Age: 75 Year
  Sex: Male

DRUGS (3)
  1. ENDOXAN 2000 MG, LYOPHILISAT POUR SOLUTION INJECTABLE [Suspect]
     Indication: MANTLE CELL LYMPHOMA
     Dosage: 425 X 3
     Route: 065
     Dates: start: 20080110, end: 20080504
  2. RITUXIMAB [Suspect]
     Indication: MANTLE CELL LYMPHOMA
     Route: 065
     Dates: start: 20080110, end: 20080502
  3. FLUDARABINE [Suspect]
     Indication: MANTLE CELL LYMPHOMA
     Dosage: 50 X 3
     Route: 065
     Dates: start: 20080110, end: 20080504

REACTIONS (2)
  - Lung infection [Recovered/Resolved]
  - Pneumonia pseudomonas aeruginosa [Fatal]
